FAERS Safety Report 22333853 (Version 1)
Quarter: 2023Q2

REPORT INFORMATION
  Report Type: Spontaneous
  Country: US (occurrence: US)
  Receive Date: 20230517
  Receipt Date: 20230517
  Transmission Date: 20230721
  Serious: No
  Sender: FDA-Public Use
  Company Number: US-AIMMUNE THERAPEUTICS, INC.-2022AIMT02794

PATIENT

DRUGS (7)
  1. PALFORZIA [Suspect]
     Active Substance: PEANUT
     Indication: Food allergy
     Dosage: IDE (0.5MG-6MG), ONCE
     Route: 048
     Dates: start: 202203, end: 202203
  2. PALFORZIA [Suspect]
     Active Substance: PEANUT
     Dosage: 160 MG, 1X/DAY
     Route: 048
     Dates: start: 20221005, end: 2022
  3. PALFORZIA [Suspect]
     Active Substance: PEANUT
     Dosage: 160 MG, ONCE, LAST DOSE PRIOR TO EVENTS OF ITCHING AND STOMACH PAIN/STOMACH DISCOMFORT
     Route: 048
     Dates: start: 202210, end: 202210
  4. PALFORZIA [Suspect]
     Active Substance: PEANUT
     Dosage: 80 MG, 1X/DAY, DOSE DECREASED
     Route: 048
     Dates: start: 2022, end: 20221102
  5. PALFORZIA [Suspect]
     Active Substance: PEANUT
     Dosage: 80 MG, ONCE, LAST DOSE PRIOR TO EVENTS OF ITCHY MOUTH AND MILD SWELLING
     Route: 048
     Dates: start: 202211, end: 202211
  6. PALFORZIA [Suspect]
     Active Substance: PEANUT
     Dosage: 60 MG, 1X/DAY, DOSE DECREASED
     Route: 048
     Dates: start: 20221103, end: 202211
  7. PALFORZIA [Suspect]
     Active Substance: PEANUT
     Dosage: 60 MG, ONCE, LAST DOSE PRIOR COVID, ABDOMINAL PAIN AND ECZEMA ON FINGERTIPS
     Route: 048
     Dates: start: 202211, end: 202211

REACTIONS (8)
  - Swelling [Recovered/Resolved]
  - Intentional underdose [Recovered/Resolved]
  - COVID-19 [Recovered/Resolved]
  - Eczema [Recovered/Resolved]
  - Throat irritation [Recovered/Resolved]
  - Abdominal pain upper [Recovered/Resolved]
  - Oral pruritus [Recovered/Resolved]
  - Abdominal pain [Recovered/Resolved]

NARRATIVE: CASE EVENT DATE: 20220101
